FAERS Safety Report 14714811 (Version 1)
Quarter: 2018Q2

REPORT INFORMATION
  Report Type: Spontaneous
  Country: CN (occurrence: CN)
  Receive Date: 20180404
  Receipt Date: 20180404
  Transmission Date: 20180711
  Serious: Yes (Hospitalization)
  Sender: FDA-Public Use
  Company Number: CN-ALLERGAN-1816863US

PATIENT
  Age: 46 Year
  Sex: Female

DRUGS (2)
  1. BOTOX [Suspect]
     Active Substance: ONABOTULINUMTOXINA
     Indication: PRODUCT USED FOR UNKNOWN INDICATION
     Dosage: 50 UNITS, SINGLE
     Route: 065
     Dates: start: 20180312, end: 20180312
  2. HENG LI [Suspect]
     Active Substance: IMMUNE GLOBULIN NOS
     Indication: PRODUCT USED FOR UNKNOWN INDICATION
     Dosage: 50 UNITS, SINGLE
     Route: 065
     Dates: start: 20180312, end: 20180312

REACTIONS (1)
  - Botulism [Unknown]

NARRATIVE: CASE EVENT DATE: 20180314
